FAERS Safety Report 20868384 (Version 1)
Quarter: 2022Q2

REPORT INFORMATION
  Report Type: Spontaneous
  Country: US (occurrence: None)
  Receive Date: 20220524
  Receipt Date: 20220524
  Transmission Date: 20220720
  Serious: No
  Sender: FDA-Public Use
  Company Number: None

PATIENT
  Sex: Female

DRUGS (1)
  1. LENALIDOMIDE [Suspect]
     Active Substance: LENALIDOMIDE
     Indication: Plasma cell myeloma
     Dosage: 25MG DAILY BY MOUTH
     Route: 048
     Dates: start: 20211220

REACTIONS (2)
  - Asthenia [None]
  - Therapy change [None]

NARRATIVE: CASE EVENT DATE: 20220401
